FAERS Safety Report 6867877-1 (Version None)
Quarter: 2010Q3

REPORT INFORMATION
  Report Type: 
  Country: None (occurrence: None)
  Receive Date: 20100722
  Receipt Date: 20080513
  Transmission Date: 20110219
  Serious: No
  Sender: FDA-Public Use
  Company Number: US-PFIZER INC-2008039170

PATIENT
  Sex: Female
  Weight: 88.6 kg

DRUGS (6)
  1. CHANTIX [Suspect]
     Indication: SMOKING CESSATION THERAPY
     Route: 048
     Dates: start: 20080421, end: 20080425
  2. CHOLESTEROL- AND TRIGLYCERIDE REDUCERS [Concomitant]
  3. LEVOTHYROXINE SODIUM [Concomitant]
  4. PARNATE [Concomitant]
  5. VALIUM [Concomitant]
  6. ALL OTHER THERAPEUTIC PRODUCTS [Concomitant]

REACTIONS (5)
  - ANXIETY [None]
  - DYSGEUSIA [None]
  - HYPERHIDROSIS [None]
  - NIGHTMARE [None]
  - PALPITATIONS [None]
